FAERS Safety Report 8079667-5 (Version None)
Quarter: 2012Q1

REPORT INFORMATION
  Report Type: 
  Country: None (occurrence: None)
  Receive Date: 20120128
  Receipt Date: 20110811
  Transmission Date: 20120608
  Serious: No
  Sender: FDA-Public Use
  Company Number: US-ABBOTT-11P-163-0845669-00

PATIENT
  Sex: Male
  Weight: 68.1 kg

DRUGS (3)
  1. HUMIRA [Suspect]
     Dosage: ONE DOSE
     Dates: start: 20110802, end: 20110802
  2. NEXIUM [Concomitant]
     Indication: DYSPEPSIA
  3. HUMIRA [Suspect]
     Indication: CROHN'S DISEASE
     Dosage: ONE DOSE
     Dates: start: 20110719, end: 20110719

REACTIONS (1)
  - HEADACHE [None]
